FAERS Safety Report 16437994 (Version 2)
Quarter: 2019Q3

REPORT INFORMATION
  Report Type: Report from Study
  Country: US (occurrence: US)
  Receive Date: 20190617
  Receipt Date: 20190826
  Transmission Date: 20191004
  Serious: No
  Sender: FDA-Public Use
  Company Number: US-ALEXION PHARMACEUTICALS INC.-A201908786

PATIENT
  Age: 52 Year
  Sex: Female

DRUGS (1)
  1. STRENSIQ [Suspect]
     Active Substance: ASFOTASE ALFA
     Indication: PRODUCT USED FOR UNKNOWN INDICATION
     Dosage: UNK
     Route: 065

REACTIONS (11)
  - Intervertebral disc protrusion [Unknown]
  - Pain in extremity [Unknown]
  - Muscle tightness [Unknown]
  - Myalgia [Unknown]
  - Sleep disorder [Unknown]
  - Back pain [Unknown]
  - Bone pain [Unknown]
  - Joint swelling [Recovering/Resolving]
  - Neck pain [Unknown]
  - Arthralgia [Unknown]
  - Pain [Not Recovered/Not Resolved]

NARRATIVE: CASE EVENT DATE: 20190525
